FAERS Safety Report 6300862-7 (Version None)
Quarter: 2009Q3

REPORT INFORMATION
  Report Type: 
  Country: None (occurrence: None)
  Receive Date: 20090807
  Receipt Date: 20090803
  Transmission Date: 20100115
  Serious: Yes (Hospitalization)
  Sender: FDA-Public Use
  Company Number: FI-TEVA-204657ISR

PATIENT
  Age: 76 Year
  Sex: Male

DRUGS (2)
  1. SIMVASTATIN [Suspect]
  2. REUMACON (CPH 82) [Interacting]

REACTIONS (4)
  - DRUG INTERACTION [None]
  - FALL [None]
  - LUMBAR VERTEBRAL FRACTURE [None]
  - MUSCLE DISORDER [None]
